FAERS Safety Report 9822519 (Version 2)
Quarter: 2014Q1

REPORT INFORMATION
  Report Type: Spontaneous
  Country: US (occurrence: US)
  Receive Date: 20140116
  Receipt Date: 20140116
  Transmission Date: 20141002
  Serious: No
  Sender: FDA-Public Use
  Company Number: US-ORAPHARMA-QUINORA-2011-001

PATIENT
  Sex: 0

DRUGS (4)
  1. ARESTIN [Suspect]
     Indication: PERIODONTAL DISEASE
     Dosage: 50 UNK, ONE TIME DOSE
     Route: 048
     Dates: start: 20111205, end: 20111205
  2. ARESTIN [Suspect]
     Dosage: 50 UNK, ONE TIME DOSE
     Route: 048
     Dates: start: 20111215, end: 20111215
  3. ALLOPURINOL [Concomitant]
     Indication: PRODUCT USED FOR UNKNOWN INDICATION
     Dosage: 300 MG, QD
  4. LIDOCAINE W/EPINEPHRINE            /00056401/ [Concomitant]
     Indication: ANAESTHESIA
     Dosage: UNK

REACTIONS (2)
  - Dyspnoea [Recovered/Resolved]
  - Asthma [None]
